FAERS Safety Report 4696229-8 (Version None)
Quarter: 2005Q2

REPORT INFORMATION
  Report Type: 
  Country: None (occurrence: None)
  Receive Date: 20050621
  Receipt Date: 20050613
  Transmission Date: 20051028
  Serious: Yes (Other)
  Sender: FDA-Public Use
  Company Number: 2005UW09061

PATIENT
  Age: 18096 Day
  Sex: Male
  Weight: 70.3 kg

DRUGS (4)
  1. PRILOSEC OTC [Suspect]
     Route: 048
     Dates: start: 20050610, end: 20050610
  2. PRILOSEC [Suspect]
     Indication: EAR DISORDER
     Route: 048
  3. PRILOSEC [Suspect]
     Indication: CHEST DISCOMFORT
     Route: 048
  4. PEPCID AC [Suspect]

REACTIONS (6)
  - DYSPNOEA [None]
  - HYPERTENSION [None]
  - MEDICATION ERROR [None]
  - OEDEMA PERIPHERAL [None]
  - PRURITUS [None]
  - THROAT TIGHTNESS [None]
